FAERS Safety Report 4733901-5 (Version None)
Quarter: 2005Q3

REPORT INFORMATION
  Report Type: 
  Country: None (occurrence: None)
  Receive Date: 20050803
  Receipt Date: 20050726
  Transmission Date: 20060218
  Serious: Yes (Hospitalization)
  Sender: FDA-Public Use
  Company Number: US-MERCK-0507USA04215

PATIENT
  Sex: Male

DRUGS (6)
  1. VIOXX [Suspect]
     Indication: ARTHRALGIA
     Route: 048
     Dates: start: 19990701
  2. VIOXX [Suspect]
     Route: 048
  3. VIOXX [Suspect]
     Route: 048
     Dates: start: 20000501, end: 20000501
  4. VIOXX [Suspect]
     Indication: SCIATICA
     Route: 048
     Dates: start: 19990701
  5. VIOXX [Suspect]
     Route: 048
  6. VIOXX [Suspect]
     Route: 048
     Dates: start: 20000501, end: 20000501

REACTIONS (3)
  - ANGINA UNSTABLE [None]
  - ATRIAL FIBRILLATION [None]
  - HYPERTENSION [None]
